FAERS Safety Report 9840641 (Version 2)
Quarter: 2014Q1

REPORT INFORMATION
  Report Type: Spontaneous
  Country: US (occurrence: US)
  Receive Date: 20140124
  Receipt Date: 20140214
  Transmission Date: 20141002
  Serious: Yes (Other)
  Sender: FDA-Public Use
  Company Number: US-PFIZER INC-2014022030

PATIENT
  Age: 49 Year
  Sex: Female
  Weight: 56.24 kg

DRUGS (2)
  1. DILANTIN [Suspect]
     Indication: CONVULSION
     Dosage: UNK
     Route: 048
  2. DILANTIN [Suspect]
     Indication: PANIC ATTACK
     Dosage: 300 MG, 1X/DAY
     Route: 048
     Dates: end: 20140113

REACTIONS (2)
  - Off label use [Unknown]
  - Convulsion [Recovering/Resolving]
